FAERS Safety Report 11270508 (Version 1)
Quarter: 2015Q3

REPORT INFORMATION
  Report Type: Spontaneous
  Country: FR (occurrence: FR)
  Receive Date: 20150714
  Receipt Date: 20150714
  Transmission Date: 20151125
  Serious: Yes (Hospitalization)
  Sender: FDA-Public Use
  Company Number: FR-SA-2015SA099396

PATIENT
  Age: 90 Year
  Sex: Female

DRUGS (15)
  1. PRIMPERAN [Suspect]
     Active Substance: METOCLOPRAMIDE HYDROCHLORIDE
     Dosage: 1 TO 3 / DAY (10 MG)
     Route: 048
     Dates: start: 20150527
  2. SPASFON [Suspect]
     Active Substance: PHLOROGLUCINOL
     Route: 048
     Dates: start: 20150527
  3. EBIXA [Suspect]
     Active Substance: MEMANTINE HYDROCHLORIDE
     Indication: DEMENTIA ALZHEIMER^S TYPE
     Route: 048
  4. TIAPRIDAL [Suspect]
     Active Substance: TIAPRIDE HYDROCHLORIDE
     Route: 048
  5. IBUFETUM [Suspect]
     Active Substance: IBUPROFEN
     Dosage: CUTANEOUS
     Dates: start: 20150527
  6. GALANTAMINE HYDROBROMIDE. [Suspect]
     Active Substance: GALANTAMINE HYDROBROMIDE
     Indication: DEMENTIA ALZHEIMER^S TYPE
     Route: 048
  7. COAPROVEL [Suspect]
     Active Substance: HYDROCHLOROTHIAZIDE\IRBESARTAN
     Route: 048
  8. PARIET [Suspect]
     Active Substance: RABEPRAZOLE SODIUM
     Route: 048
  9. IKOREL [Suspect]
     Active Substance: NICORANDIL
     Route: 048
  10. LOPERAMIDE HYDROCHLORIDE. [Suspect]
     Active Substance: LOPERAMIDE HYDROCHLORIDE
     Route: 048
     Dates: start: 20150527
  11. BETASERC [Suspect]
     Active Substance: BETAHISTINE
     Route: 048
  12. DOLIPRANE [Suspect]
     Active Substance: ACETAMINOPHEN
     Route: 048
  13. NORSET [Suspect]
     Active Substance: MIRTAZAPINE
     Route: 048
  14. AMLOR [Suspect]
     Active Substance: AMLODIPINE BESYLATE
     Route: 048
  15. DOLENIO [Suspect]
     Active Substance: GLUCOSAMINE
     Route: 048

REACTIONS (2)
  - Hyponatraemia [Unknown]
  - Loss of consciousness [Unknown]

NARRATIVE: CASE EVENT DATE: 20150604
